FAERS Safety Report 7207431-5 (Version None)
Quarter: 2011Q1

REPORT INFORMATION
  Report Type: 
  Country: None (occurrence: None)
  Receive Date: 20110103
  Receipt Date: 20101227
  Transmission Date: 20110831
  Serious: No
  Sender: FDA-Public Use
  Company Number: US-PFIZER INC-2010002059

PATIENT
  Sex: Male
  Weight: 72 kg

DRUGS (3)
  1. TORISEL [Suspect]
     Dosage: 25 MG, WEEKLY
     Route: 042
     Dates: start: 20090801
  2. SORAFENIB [Suspect]
  3. SUTENT [Suspect]
     Indication: RENAL CELL CARCINOMA
     Dosage: 50 MG, 1X/DAY
     Route: 048
     Dates: start: 20071101

REACTIONS (2)
  - METASTATIC RENAL CELL CARCINOMA [None]
  - DISEASE PROGRESSION [None]
